FAERS Safety Report 8595118-6 (Version None)
Quarter: 2012Q3

REPORT INFORMATION
  Report Type: 
  Country: None (occurrence: None)
  Receive Date: 20120807
  Receipt Date: 20120807
  Transmission Date: 20120928
  Serious: Yes (Life-Threatening, Hospitalization)
  Sender: FDA-Public Use
  Company Number: None

PATIENT
  Age: 83 Year
  Sex: Male
  Weight: 72.5755 kg

DRUGS (2)
  1. RAMIPRIL [Suspect]
     Indication: MYOCARDIAL INFARCTION
     Dosage: 1.25 MG 1 DAILEY
     Dates: start: 20120421
  2. ATENOLOL [Suspect]
     Indication: ORGAN FAILURE
     Dosage: 50 MGS 1 DAILEY
     Dates: start: 20120422

REACTIONS (3)
  - ADVERSE EVENT [None]
  - ORGAN FAILURE [None]
  - MYOCARDIAL INFARCTION [None]
